FAERS Safety Report 5977132-X (Version None)
Quarter: 2008Q4

REPORT INFORMATION
  Report Type: 
  Country: None (occurrence: None)
  Receive Date: 20081203
  Receipt Date: 20081203
  Transmission Date: 20090506
  Serious: Yes (Hospitalization, Other)
  Sender: FDA-Public Use
  Company Number: US-WYE-H00637407

PATIENT
  Sex: Male
  Weight: 97.2 kg

DRUGS (4)
  1. AMIODARONE HCL [Suspect]
     Indication: ATRIAL FIBRILLATION
     Route: 048
     Dates: start: 20070817
  2. AMIODARONE HCL [Concomitant]
  3. COUMADIN [Suspect]
     Dosage: 10 MG, FREQUENCY UNSPECIFIED
     Route: 048
     Dates: end: 20070101
  4. COUMADIN [Suspect]
     Dosage: UNSPECIFIED
     Route: 048
     Dates: start: 20070101

REACTIONS (3)
  - CARDIAC FAILURE CONGESTIVE [None]
  - INTERNATIONAL NORMALISED RATIO INCREASED [None]
  - VENTRICULAR TACHYCARDIA [None]
